FAERS Safety Report 17166601 (Version 1)
Quarter: 2019Q4

REPORT INFORMATION
  Report Type: Spontaneous
  Country: US (occurrence: US)
  Receive Date: 20191217
  Receipt Date: 20191217
  Transmission Date: 20200122
  Serious: No
  Sender: FDA-Public Use
  Company Number: US-009507513-1911USA011071

PATIENT
  Sex: Female

DRUGS (3)
  1. PROVENTIL [Suspect]
     Active Substance: ALBUTEROL
     Indication: ASTHMA
  2. PROVENTIL [Suspect]
     Active Substance: ALBUTEROL
     Indication: ASTHMA
     Dosage: 1 OR 2 PUFFS A DAY
     Route: 055
     Dates: start: 2019
  3. PROVENTIL [Suspect]
     Active Substance: ALBUTEROL
     Dosage: 1 OR 2 PUFFS A DAY
     Route: 055
     Dates: start: 201911

REACTIONS (4)
  - Stomatitis [Recovered/Resolved]
  - Underdose [Unknown]
  - Product quality issue [Unknown]
  - Poor quality device used [Unknown]

NARRATIVE: CASE EVENT DATE: 2019
